FAERS Safety Report 10506732 (Version 9)
Quarter: 2015Q3

REPORT INFORMATION
  Report Type: Report from Study
  Country: CA (occurrence: CA)
  Receive Date: 20141009
  Receipt Date: 20150902
  Transmission Date: 20151125
  Serious: Yes (Other)
  Sender: FDA-Public Use
  Company Number: CA-ROCHE-1150221

PATIENT
  Age: 65 Year
  Sex: Female
  Weight: 67 kg

DRUGS (13)
  1. ACTEMRA [Suspect]
     Active Substance: TOCILIZUMAB
     Indication: RHEUMATOID ARTHRITIS
     Dosage: DOSE REDUCED TO 536 MG
     Route: 042
     Dates: start: 20140708
  2. RITUXAN [Suspect]
     Active Substance: RITUXIMAB
     Indication: RHEUMATOID ARTHRITIS
     Route: 042
     Dates: start: 20121011, end: 20140128
  3. IMOVANE [Concomitant]
     Active Substance: ZOPICLONE
  4. METHYLPREDNISOLONE. [Concomitant]
     Active Substance: METHYLPREDNISOLONE
     Route: 042
     Dates: start: 20111011, end: 20140128
  5. OMEPRAZOLE. [Concomitant]
     Active Substance: OMEPRAZOLE
  6. ELTROXIN [Concomitant]
     Active Substance: LEVOTHYROXINE
  7. CELEBREX [Concomitant]
     Active Substance: CELECOXIB
  8. DEXAMETH [Concomitant]
     Active Substance: DEXAMETHASONE
  9. ARAVA [Concomitant]
     Active Substance: LEFLUNOMIDE
  10. DIPHENHYDRAMINE HCL [Concomitant]
     Active Substance: DIPHENHYDRAMINE HYDROCHLORIDE
     Route: 048
     Dates: start: 20111011, end: 20140128
  11. ACETAMINOPHEN. [Concomitant]
     Active Substance: ACETAMINOPHEN
     Route: 048
     Dates: start: 20111011, end: 20140128
  12. PREDNISONE. [Concomitant]
     Active Substance: PREDNISONE
  13. OMEGA 3 [Concomitant]
     Active Substance: OMEGA-3 FATTY ACIDS

REACTIONS (9)
  - Pyrexia [Recovered/Resolved]
  - Ill-defined disorder [Unknown]
  - Skin ulcer [Not Recovered/Not Resolved]
  - Hot flush [Recovered/Resolved]
  - Chills [Recovered/Resolved]
  - Burning sensation [Recovered/Resolved]
  - Infusion related reaction [Unknown]
  - Weight decreased [Not Recovered/Not Resolved]
  - Arthropathy [Recovered/Resolved]

NARRATIVE: CASE EVENT DATE: 20121022
